FAERS Safety Report 12683966 (Version 1)
Quarter: 2016Q3

REPORT INFORMATION
  Report Type: Spontaneous
  Country: MX (occurrence: MX)
  Receive Date: 20160825
  Receipt Date: 20160825
  Transmission Date: 20161109
  Serious: Yes (Death, Other)
  Sender: FDA-Public Use
  Company Number: MX-PFIZER INC-2016397829

PATIENT

DRUGS (1)
  1. XALKORI [Suspect]
     Active Substance: CRIZOTINIB
     Dosage: 250 MG, UNK
     Dates: start: 2014

REACTIONS (2)
  - Death [Fatal]
  - Pneumonia [Unknown]

NARRATIVE: CASE EVENT DATE: 20160822
